FAERS Safety Report 5806870-4 (Version None)
Quarter: 2008Q3

REPORT INFORMATION
  Report Type: 
  Country: None (occurrence: None)
  Receive Date: 20080711
  Receipt Date: 20080630
  Transmission Date: 20090109
  Serious: Yes (Other)
  Sender: FDA-Public Use
  Company Number: GB-KINGPHARMUSA00001-K200800767

PATIENT

DRUGS (1)
  1. SILVADENE CREAM 1% [Suspect]
     Indication: EPIDERMOLYSIS BULLOSA
     Dosage: UNDER OCCLUDING WOUND DRESSINGS
     Route: 061

REACTIONS (5)
  - ARGYRIA [None]
  - COORDINATION ABNORMAL [None]
  - LOSS OF PROPRIOCEPTION [None]
  - PARAESTHESIA [None]
  - SKIN DISCOLOURATION [None]
